FAERS Safety Report 8238761-6 (Version None)
Quarter: 2012Q1

REPORT INFORMATION
  Report Type: 
  Country: None (occurrence: None)
  Receive Date: 20120326
  Receipt Date: 20120309
  Transmission Date: 20120608
  Serious: Yes (Other)
  Sender: FDA-Public Use
  Company Number: 2012P1009408

PATIENT
  Age: 73 Year
  Sex: Male
  Weight: 92.0802 kg

DRUGS (7)
  1. ENALAPRIL [Concomitant]
  2. LASIX [Concomitant]
  3. SYNTHROID [Concomitant]
  4. DIGOXIN [Concomitant]
  5. CARVEDILOL [Concomitant]
  6. WARFARIN SODIUM [Suspect]
     Indication: ANTICOAGULANT THERAPY
     Dosage: 5 MG; QD
     Dates: start: 19980101
  7. KLOR-CON [Concomitant]

REACTIONS (4)
  - INCORRECT DOSE ADMINISTERED [None]
  - CATARACT OPERATION [None]
  - HYPERTHYROIDISM [None]
  - INTERNATIONAL NORMALISED RATIO INCREASED [None]
